FAERS Safety Report 7332579-4 (Version None)
Quarter: 2011Q1

REPORT INFORMATION
  Report Type: 
  Country: None (occurrence: None)
  Receive Date: 20110304
  Receipt Date: 20110301
  Transmission Date: 20110831
  Serious: Yes (Death)
  Sender: FDA-Public Use
  Company Number: PHHY2011US13078

PATIENT
  Sex: Male

DRUGS (11)
  1. NEPHRO-VITE [Concomitant]
  2. LASIX [Concomitant]
  3. ZOCOR [Concomitant]
  4. NEORAL [Suspect]
     Indication: RENAL TRANSPLANT
     Dosage: 100 MG, BID
     Route: 048
     Dates: start: 20090720
  5. ASA [Concomitant]
  6. OXYCODONE [Concomitant]
  7. FLOVENT [Concomitant]
  8. NEORAL [Suspect]
     Indication: LIVER TRANSPLANT
     Dosage: 150 MG, BID
  9. MYFORTIC [Concomitant]
  10. COMBIVENT [Concomitant]
  11. PREDNISONE [Concomitant]

REACTIONS (1)
  - CARDIAC FAILURE CONGESTIVE [None]
